FAERS Safety Report 5797382-5 (Version None)
Quarter: 2008Q3

REPORT INFORMATION
  Report Type: 
  Country: None (occurrence: None)
  Receive Date: 20080701
  Receipt Date: 20080612
  Transmission Date: 20090109
  Serious: No
  Sender: FDA-Public Use
  Company Number: US-BOEHRINGER INGELHEIM GMBH, GERMANY-2008-BP-09212BP

PATIENT
  Sex: Male

DRUGS (6)
  1. AGGRENOX [Suspect]
     Indication: CEREBROVASCULAR ACCIDENT PROPHYLAXIS
     Dosage: 50MG/400MG
     Route: 048
     Dates: start: 20080607
  2. INSULIN [Concomitant]
  3. BLADDER [Concomitant]
  4. METFORMIN HCL [Concomitant]
  5. BLOOD PRESSURE MEDICATIONS [Concomitant]
     Indication: HYPERTENSION
  6. CHOLESTEROL [Concomitant]
     Indication: BLOOD CHOLESTEROL INCREASED

REACTIONS (1)
  - DIARRHOEA [None]
